FAERS Safety Report 18954692 (Version 1)
Quarter: 2021Q1

REPORT INFORMATION
  Report Type: Spontaneous
  Country: PL (occurrence: PL)
  Receive Date: 20210301
  Receipt Date: 20210301
  Transmission Date: 20210420
  Serious: Yes (Hospitalization)
  Sender: FDA-Public Use
  Company Number: PL-BAYER-2021-083072

PATIENT
  Age: 89 Year
  Sex: Female
  Weight: 50 kg

DRUGS (1)
  1. ULTRAVIST [Suspect]
     Active Substance: IOPROMIDE
     Indication: NERVOUS SYSTEM DISORDER
     Route: 042
     Dates: start: 20191217, end: 20191217

REACTIONS (5)
  - Pulse absent [Recovered/Resolved]
  - Syncope [Recovered/Resolved]
  - Carotid pulse decreased [Recovered/Resolved]
  - Eyelid oedema [Recovered/Resolved]
  - Blood pressure decreased [Recovered/Resolved]

NARRATIVE: CASE EVENT DATE: 20191217
